FAERS Safety Report 10706335 (Version 1)
Quarter: 2015Q1

REPORT INFORMATION
  Report Type: Spontaneous
  Country: DE (occurrence: DE)
  Receive Date: 20150113
  Receipt Date: 20150113
  Transmission Date: 20150721
  Serious: Yes (Other)
  Sender: FDA-Public Use
  Company Number: DE-DRREDDYS-GER/GER/15/0045328

PATIENT
  Age: 38 Year
  Sex: Female
  Weight: 66.5 kg

DRUGS (5)
  1. MISOPROSTOL. [Concomitant]
     Active Substance: MISOPROSTOL
     Indication: LABOUR INDUCTION
     Route: 065
     Dates: start: 20140511, end: 20140511
  2. FRAGMIN P FORTE [Concomitant]
     Active Substance: DALTEPARIN SODIUM
     Indication: FACTOR II DEFICIENCY
     Route: 058
  3. L-THYROXIN [Concomitant]
     Active Substance: LEVOTHYROXINE SODIUM
     Indication: AUTOIMMUNE THYROIDITIS
     Route: 048
  4. METOPROLOL [Suspect]
     Active Substance: METOPROLOL
     Indication: HYPERTENSION
     Dosage: 100 MG DAILY INITIALLY 25MG DAILY, FROM GW 32 2X50MG DAILY
     Route: 048
  5. FEMIBION SCHWANGERSCHAFT 1 [Concomitant]
     Indication: PROPHYLAXIS OF NEURAL TUBE DEFECT
     Dosage: 0.8 MG/D (BIS 0.4)
     Route: 048

REACTIONS (4)
  - Hypertension [Unknown]
  - Labour induction [Unknown]
  - Caesarean section [Unknown]
  - Exposure during pregnancy [Unknown]
